FAERS Safety Report 8832246 (Version 2)
Quarter: 2013Q2

REPORT INFORMATION
  Report Type: Report from Study
  Country: MX (occurrence: MX)
  Receive Date: 20121009
  Receipt Date: 20130506
  Transmission Date: 20140414
  Serious: Yes (Death)
  Sender: FDA-Public Use
  Company Number: PHHY2011MX106216

PATIENT
  Age: 49 Year
  Sex: Female

DRUGS (9)
  1. EXFORGE HCT [Suspect]
     Indication: HYPERTENSION
     Dosage: 1 DF(160 MG VALS, 5MG AMLO AND 12.5 MG HYDRO), PER DAY
     Dates: start: 201104, end: 201204
  2. RANITIDINE [Concomitant]
     Indication: GASTRIC DISORDER
     Dosage: 2 DF, PER DAY
     Dates: start: 201104
  3. ALZAM [Concomitant]
     Indication: SLEEP DISORDER
     Dosage: 2 DF, PER DAY
     Dates: start: 201103
  4. TREDA [Concomitant]
     Indication: DIARRHOEA
     Dosage: 3 DF, PER DAY
     Dates: start: 201205
  5. CHEMOTHERAPEUTICS NOS [Concomitant]
  6. ACTRON                                  /UNK/ [Concomitant]
     Indication: PAIN IN EXTREMITY
     Dates: start: 201206
  7. ZOLEDRONIC ACID [Concomitant]
     Dates: start: 2012
  8. MYCIL [Concomitant]
     Indication: FLUID RETENTION
     Dates: start: 201206
  9. VENALOT DEPOT [Concomitant]
     Indication: CARDIOVASCULAR DISORDER
     Dates: start: 201206

REACTIONS (9)
  - Death [Fatal]
  - Anaemia [Unknown]
  - Food intolerance [Not Recovered/Not Resolved]
  - Local swelling [Unknown]
  - Blood pressure inadequately controlled [Not Recovered/Not Resolved]
  - Fatigue [Not Recovered/Not Resolved]
  - Decreased appetite [Not Recovered/Not Resolved]
  - Asthenia [Unknown]
  - Arthralgia [Unknown]
